FAERS Safety Report 19020580 (Version 1)
Quarter: 2021Q1

REPORT INFORMATION
  Report Type: Report from Study
  Country: US (occurrence: US)
  Receive Date: 20210317
  Receipt Date: 20210317
  Transmission Date: 20210420
  Serious: Yes (Hospitalization)
  Sender: FDA-Public Use
  Company Number: US-JNJFOC-20210315946

PATIENT
  Age: 59 Year
  Sex: Female
  Weight: 54.5 kg

DRUGS (4)
  1. TADALAFIL. [Concomitant]
     Active Substance: TADALAFIL
  2. AMLODIPINE [Concomitant]
     Active Substance: AMLODIPINE BESYLATE
  3. SELEXIPAG [Suspect]
     Active Substance: SELEXIPAG
     Indication: PULMONARY HYPERTENSION
     Route: 048
  4. AMBRISENTAN [Concomitant]
     Active Substance: AMBRISENTAN

REACTIONS (1)
  - Large intestine perforation [Unknown]

NARRATIVE: CASE EVENT DATE: 20210203
